FAERS Safety Report 7277604-4 (Version None)
Quarter: 2011Q1

REPORT INFORMATION
  Report Type: 
  Country: None (occurrence: None)
  Receive Date: 20110207
  Receipt Date: 20110201
  Transmission Date: 20110831
  Serious: Yes (Hospitalization)
  Sender: FDA-Public Use
  Company Number: US-AMGEN-USASP2011006206

PATIENT
  Age: 67 Year
  Sex: Female

DRUGS (2)
  1. HUMIRA [Concomitant]
     Indication: RHEUMATOID ARTHRITIS
  2. ENBREL [Suspect]
     Indication: RHEUMATOID ARTHRITIS
     Dosage: 50 MG, 2 TIMES/WK

REACTIONS (7)
  - CYST [None]
  - ARTHRALGIA [None]
  - BACK PAIN [None]
  - TREMOR [None]
  - RHEUMATOID ARTHRITIS [None]
  - HEADACHE [None]
  - ABDOMINAL PAIN UPPER [None]
